FAERS Safety Report 6318111-2 (Version None)
Quarter: 2009Q3

REPORT INFORMATION
  Report Type: 
  Country: None (occurrence: None)
  Receive Date: 20090821
  Receipt Date: 20090818
  Transmission Date: 20100115
  Serious: Yes (Death, Hospitalization)
  Sender: FDA-Public Use
  Company Number: JP-JNJFOC-20090502650

PATIENT
  Sex: Male
  Weight: 69 kg

DRUGS (17)
  1. FENTANYL [Suspect]
     Route: 062
  2. FENTANYL [Suspect]
     Route: 062
  3. FENTANYL [Suspect]
     Indication: PAIN
     Route: 062
  4. FENTANYL [Suspect]
     Route: 062
  5. FENTANYL [Suspect]
     Route: 062
  6. FENTANYL [Suspect]
     Route: 062
  7. FENTANYL [Suspect]
     Route: 062
  8. MAGNESIUM OXIDE [Concomitant]
     Indication: CONSTIPATION
     Route: 048
  9. PURSENNID [Concomitant]
     Indication: CONSTIPATION
     Route: 048
  10. SENNOSIDE (UNSPECIFIED) [Concomitant]
     Indication: CONSTIPATION
     Route: 048
  11. RIVOTRIL [Concomitant]
     Indication: PAIN
     Route: 048
  12. BENZALIN [Concomitant]
     Indication: PAIN
     Route: 048
  13. GABAPEN [Concomitant]
     Indication: PAIN
     Route: 048
  14. TRYPTANOL [Concomitant]
     Indication: PAIN
     Route: 048
  15. BROTIZOLAM [Concomitant]
     Indication: PAIN
     Route: 048
  16. MYSLEE [Concomitant]
     Indication: PAIN
     Route: 048
  17. MORPHINE HYDROCHLORIDE [Concomitant]
     Indication: PAIN
     Route: 048

REACTIONS (2)
  - MELAENA [None]
  - PANCREATIC CARCINOMA [None]
